FAERS Safety Report 7626696-9 (Version None)
Quarter: 2011Q3

REPORT INFORMATION
  Report Type: 
  Country: None (occurrence: None)
  Receive Date: 20110721
  Receipt Date: 20110622
  Transmission Date: 20111222
  Serious: No
  Sender: FDA-Public Use
  Company Number: US-NOVEN-11US002665

PATIENT
  Sex: Male

DRUGS (5)
  1. DOXYCYCLINE [Concomitant]
     Indication: LYME DISEASE
     Route: 048
  2. LYRICA [Concomitant]
     Indication: PRODUCT USED FOR UNKNOWN INDICATION
     Route: 048
  3. HYDROMORPHONE HCL [Concomitant]
     Indication: PAIN
     Route: 048
  4. FENTANYL [Suspect]
     Indication: BACK INJURY
     Dosage: 50 UG, Q72H
     Route: 062
  5. CELEBREX [Concomitant]
     Indication: PAIN
     Route: 048

REACTIONS (6)
  - FEELING ABNORMAL [None]
  - OVERDOSE [None]
  - DIZZINESS [None]
  - CHEST PAIN [None]
  - DYSPNOEA [None]
  - PRODUCT QUALITY ISSUE [None]
